FAERS Safety Report 20455335 (Version 1)
Quarter: 2022Q1

REPORT INFORMATION
  Report Type: Report from Study
  Country: TR (occurrence: TR)
  Receive Date: 20220210
  Receipt Date: 20220210
  Transmission Date: 20220423
  Serious: Yes (Hospitalization, Other)
  Sender: FDA-Public Use
  Company Number: TR-GILEAD-2022-0569164

PATIENT
  Age: 67 Year
  Sex: Female

DRUGS (1)
  1. LEDIPASVIR\SOFOSBUVIR [Suspect]
     Active Substance: LEDIPASVIR\SOFOSBUVIR
     Indication: Hepatitis C
     Dosage: 1 DOSAGE FORM, QD
     Route: 065

REACTIONS (2)
  - Hepatitis B [Recovered/Resolved]
  - Hepatitis B reactivation [Recovered/Resolved]
